FAERS Safety Report 15393103 (Version 2)
Quarter: 2019Q1

REPORT INFORMATION
  Report Type: Spontaneous
  Country: FR (occurrence: FR)
  Receive Date: 20180917
  Receipt Date: 20190325
  Transmission Date: 20190417
  Serious: Yes (Death, Hospitalization)
  Sender: FDA-Public Use
  Company Number: FR-PFIZER INC-2018367865

PATIENT
  Age: 73 Year
  Sex: Male
  Weight: 82 kg

DRUGS (4)
  1. PREGABALIN. [Suspect]
     Active Substance: PREGABALIN
     Indication: ANALGESIC INTERVENTION SUPPORTIVE THERAPY
     Dosage: 50 MG, 1X/DAY
     Route: 048
     Dates: end: 20180808
  2. REVLIMID [Suspect]
     Active Substance: LENALIDOMIDE
     Indication: AMYLOIDOSIS
     Dosage: 7.5 MG, 1X/DAY (7.5 MG / DAY (21 DAYS OUT OF 28))
     Route: 048
     Dates: start: 2016, end: 20180808
  3. LINEZOLIDE ARROW [Suspect]
     Active Substance: LINEZOLID
     Indication: OSTEITIS
     Dosage: 1200 MG, 1X/DAY
     Route: 048
     Dates: start: 20180720, end: 20180810
  4. CEFOXITINE PANPHARMA [Suspect]
     Active Substance: CEFOXITIN SODIUM
     Indication: OSTEITIS
     Dosage: 6 G, WEEKLY (2G MONDAY, WEDNESDAY, FRIDAY)
     Route: 042
     Dates: start: 20180720, end: 20180815

REACTIONS (2)
  - Jaundice cholestatic [Fatal]
  - Product use in unapproved indication [Unknown]

NARRATIVE: CASE EVENT DATE: 20180725
